FAERS Safety Report 4465953-4 (Version None)
Quarter: 2004Q3

REPORT INFORMATION
  Report Type: 
  Country: None (occurrence: None)
  Receive Date: 20040930
  Receipt Date: 20040917
  Transmission Date: 20050211
  Serious: Yes (Death, Hospitalization)
  Sender: FDA-Public Use
  Company Number: S04-DEN-04699-01

PATIENT
  Age: 87 Year
  Sex: Male

DRUGS (3)
  1. AKARIN     (CITALOPRAM) [Suspect]
     Indication: DEPRESSION
     Dosage: 10 MG QD PO
     Route: 048
     Dates: end: 20040826
  2. CORODIL (ENALAPRIL) [Suspect]
     Dates: end: 20040826
  3. CENTYL MED KALIUMKLORID MITE 9BENDROFLUMETHIAZIDE) [Concomitant]
     Dates: end: 20040828

REACTIONS (4)
  - CONFUSIONAL STATE [None]
  - DRUG INTERACTION [None]
  - HYPONATRAEMIA [None]
  - SYNCOPE [None]
